FAERS Safety Report 8203904-7 (Version None)
Quarter: 2012Q1

REPORT INFORMATION
  Report Type: 
  Country: None (occurrence: None)
  Receive Date: 20120313
  Receipt Date: 20120302
  Transmission Date: 20120608
  Serious: Yes (Death, Hospitalization)
  Sender: FDA-Public Use
  Company Number: JP-GENZYME-FABR-1002270

PATIENT
  Sex: Female
  Weight: 62 kg

DRUGS (2)
  1. FABRAZYME [Suspect]
     Indication: FABRY'S DISEASE
     Dosage: 0.56 MG/KG, Q2W
     Route: 042
     Dates: start: 20091111, end: 20111109
  2. FABRAZYME [Suspect]
     Dosage: 1 MG/KG, Q2W
     Route: 042
     Dates: start: 20060801, end: 20091028

REACTIONS (2)
  - VENTRICULAR FIBRILLATION [None]
  - CARDIAC NEOPLASM UNSPECIFIED [None]
